FAERS Safety Report 24387315 (Version 1)
Quarter: 2024Q4

REPORT INFORMATION
  Report Type: Spontaneous
  Country: US (occurrence: None)
  Receive Date: 20241001
  Receipt Date: 20241001
  Transmission Date: 20250115
  Serious: Yes (Hospitalization)
  Sender: Public
  Company Number: None

PATIENT
  Age: 58 Year
  Sex: Female

DRUGS (5)
  1. EPOPROSTENOL [Suspect]
     Active Substance: EPOPROSTENOL
     Indication: Pulmonary arterial hypertension
     Dosage: OTHER QUANTITY : 9 NG/KG/MIN;?OTHER FREQUENCY : CONTINUOUS;?
     Route: 042
     Dates: start: 202409
  2. AMBRISENTAN [Concomitant]
     Active Substance: AMBRISENTAN
  3. DEVICE [Concomitant]
     Active Substance: DEVICE
  4. TADALAFIL [Concomitant]
     Active Substance: TADALAFIL
  5. SOD CHLOR SDV [Concomitant]

REACTIONS (2)
  - Dyspnoea [None]
  - Drug intolerance [None]

NARRATIVE: CASE EVENT DATE: 20240929
